FAERS Safety Report 5295450-8 (Version None)
Quarter: 2007Q2

REPORT INFORMATION
  Report Type: 
  Country: None (occurrence: None)
  Receive Date: 20070412
  Receipt Date: 20070410
  Transmission Date: 20071010
  Serious: Yes (Disabling, Other)
  Sender: FDA-Public Use
  Company Number: AE-MERCK-0703USA05181

PATIENT
  Age: 42 Year
  Sex: Male
  Weight: 162 kg

DRUGS (1)
  1. ZETIA [Suspect]
     Indication: DYSLIPIDAEMIA
     Route: 048
     Dates: start: 20060802, end: 20070125

REACTIONS (4)
  - ALANINE AMINOTRANSFERASE INCREASED [None]
  - BLOOD CREATINE PHOSPHOKINASE [None]
  - HEPATIC ENZYME INCREASED [None]
  - MYALGIA [None]
